FAERS Safety Report 16066952 (Version 1)
Quarter: 2019Q1

REPORT INFORMATION
  Report Type: Report from Study
  Country: ES (occurrence: ES)
  Receive Date: 20190313
  Receipt Date: 20190313
  Transmission Date: 20190418
  Serious: Yes (Hospitalization, Other)
  Sender: FDA-Public Use
  Company Number: ES-ASPEN-GLO2019ES002157

PATIENT
  Age: 5 Year
  Sex: Male
  Weight: 22.3 kg

DRUGS (3)
  1. TIOGUANINA ASPEN [Suspect]
     Active Substance: THIOGUANINE ANHYDROUS
     Indication: ACUTE LYMPHOCYTIC LEUKAEMIA
     Dosage: 40 MG, QD
     Route: 048
     Dates: start: 20180504, end: 20180517
  2. CITARABINA [Suspect]
     Active Substance: CYTARABINE
     Indication: ACUTE LYMPHOCYTIC LEUKAEMIA
     Dosage: 60 MG
     Route: 042
     Dates: start: 20180507, end: 20180517
  3. CICLOFOSFAMIDA [Suspect]
     Active Substance: CYCLOPHOSPHAMIDE
     Indication: ACUTE LYMPHOCYTIC LEUKAEMIA
     Dosage: 810 MG, QD
     Route: 042
     Dates: start: 20180504, end: 20180504

REACTIONS (4)
  - Pancytopenia [Recovered/Resolved]
  - Urinary tract infection enterococcal [Recovered/Resolved]
  - Catheter site infection [Recovered/Resolved]
  - Adenoviral upper respiratory infection [Recovered/Resolved]

NARRATIVE: CASE EVENT DATE: 20180523
